FAERS Safety Report 13169413 (Version 1)
Quarter: 2017Q1

REPORT INFORMATION
  Report Type: Spontaneous
  Country: US (occurrence: US)
  Receive Date: 20170131
  Receipt Date: 20170131
  Transmission Date: 20170428
  Serious: No
  Sender: FDA-Public Use
  Company Number: US-ABBVIE-16K-163-1536409-00

PATIENT
  Sex: Female

DRUGS (1)
  1. HUMIRA [Suspect]
     Active Substance: ADALIMUMAB
     Indication: CROHN^S DISEASE
     Route: 058

REACTIONS (7)
  - General physical health deterioration [Unknown]
  - Fatigue [Unknown]
  - Dyspepsia [Unknown]
  - Restless legs syndrome [Unknown]
  - Crohn^s disease [Unknown]
  - Sleep disorder [Unknown]
  - Gastric disorder [Unknown]
